FAERS Safety Report 6444212-4 (Version None)
Quarter: 2009Q4

REPORT INFORMATION
  Report Type: 
  Country: None (occurrence: None)
  Receive Date: 20091118
  Receipt Date: 20091109
  Transmission Date: 20100525
  Serious: Yes (Death, Other)
  Sender: FDA-Public Use
  Company Number: CA-ROCHE-656122

PATIENT
  Sex: Male

DRUGS (9)
  1. PEGASYS [Suspect]
     Indication: HEPATITIS C
     Dosage: FORM: PRE-FILLED SYRINGE
     Route: 058
     Dates: start: 20090805
  2. PEGASYS [Suspect]
     Dosage: DOSE ADJUSTED BETWEEN 90 MCG-135 MCG ONCE WEEKLY
     Route: 058
     Dates: end: 20091001
  3. RIBAVIRIN [Suspect]
     Indication: HEPATITIS C
     Dosage: DOSE WITHHELD IN WEEK 2 AND 3 AND RECEIVED INTERMITTENTLY
     Route: 048
     Dates: start: 20090805, end: 20091001
  4. NORVASC [Concomitant]
     Indication: HYPERTENSION
     Route: 048
     Dates: end: 20091001
  5. LASIX [Concomitant]
     Indication: HYPERTENSION
     Route: 048
     Dates: end: 20091001
  6. BISOPROLOL [Concomitant]
     Indication: HYPERTENSION
     Route: 048
     Dates: end: 20091001
  7. PREDNISONE [Concomitant]
     Indication: PROPHYLAXIS AGAINST TRANSPLANT REJECTION
     Route: 048
     Dates: start: 19990101, end: 20091001
  8. MICARDIS [Concomitant]
     Indication: HYPERTENSION
     Route: 048
     Dates: end: 20091001
  9. ARANESP [Concomitant]
     Dates: end: 20091001

REACTIONS (2)
  - HAEMORRHAGIC STROKE [None]
  - PLATELET COUNT DECREASED [None]
